FAERS Safety Report 8442564-7 (Version None)
Quarter: 2012Q2

REPORT INFORMATION
  Report Type: 
  Country: None (occurrence: None)
  Receive Date: 20120615
  Receipt Date: 20111226
  Transmission Date: 20120825
  Serious: No
  Sender: FDA-Public Use
  Company Number: US-NOVEN-11US003835

PATIENT
  Sex: Male
  Weight: 17.234 kg

DRUGS (3)
  1. DAYTRANA [Suspect]
     Indication: ATTENTION DEFICIT/HYPERACTIVITY DISORDER
     Dosage: 10 MG, QD
     Route: 062
     Dates: start: 20110904
  2. DAYTRANA [Suspect]
     Dosage: 1/3 10 MG QD
  3. DAYTRANA [Suspect]
     Dosage: 1/2 10MG QD

REACTIONS (10)
  - INITIAL INSOMNIA [None]
  - DECREASED APPETITE [None]
  - DRUG INEFFECTIVE [None]
  - OFF LABEL USE [None]
  - DRUG ADMINISTERED AT INAPPROPRIATE SITE [None]
  - PRODUCT QUALITY ISSUE [None]
  - WRONG TECHNIQUE IN DRUG USAGE PROCESS [None]
  - DRUG PRESCRIBING ERROR [None]
  - DRUG EFFECT DECREASED [None]
  - DRUG DOSE OMISSION [None]
